FAERS Safety Report 7396290-6 (Version None)
Quarter: 2011Q2

REPORT INFORMATION
  Report Type: 
  Country: None (occurrence: None)
  Receive Date: 20110406
  Receipt Date: 20110323
  Transmission Date: 20111010
  Serious: Yes (Other)
  Sender: FDA-Public Use
  Company Number: CA-JNJFOC-20110310282

PATIENT
  Sex: Female
  Weight: 61 kg

DRUGS (10)
  1. RENEDIL [Concomitant]
     Route: 065
  2. DIOVAN [Concomitant]
     Route: 065
  3. METHOTREXATE [Concomitant]
     Route: 065
  4. PLAQUENIL [Concomitant]
     Route: 065
  5. IRON [Concomitant]
     Route: 065
  6. REMICADE [Suspect]
     Indication: RHEUMATOID ARTHRITIS
     Route: 042
  7. SINEQUAN [Concomitant]
     Route: 065
  8. FOLIC ACID [Concomitant]
     Route: 065
  9. OGEN [Concomitant]
     Route: 065
  10. ACETAMINOPHEN [Concomitant]
     Route: 065

REACTIONS (3)
  - RESPIRATORY TRACT INFECTION VIRAL [None]
  - INTRACARDIAC MASS [None]
  - PULMONARY OEDEMA [None]
